FAERS Safety Report 25747665 (Version 1)
Quarter: 2025Q3

REPORT INFORMATION
  Report Type: Report from Study
  Country: US (occurrence: US)
  Receive Date: 20250901
  Receipt Date: 20250901
  Transmission Date: 20251021
  Serious: No
  Sender: MALLINCKRODT
  Company Number: US-MALLINCKRODT-MNK202505256

PATIENT
  Sex: Female
  Weight: 153 kg

DRUGS (1)
  1. CORTICOTROPIN [Suspect]
     Active Substance: CORTICOTROPIN
     Indication: Scleritis

REACTIONS (3)
  - Weight decreased [Unknown]
  - Muscular weakness [Unknown]
  - Bone density decreased [Unknown]
